FAERS Safety Report 6213805-1 (Version None)
Quarter: 2009Q2

REPORT INFORMATION
  Report Type: 
  Country: None (occurrence: None)
  Receive Date: 20090602
  Receipt Date: 20090519
  Transmission Date: 20091009
  Serious: Yes (Other)
  Sender: FDA-Public Use
  Company Number: TRP_06242_2009

PATIENT
  Age: 51 Year
  Sex: Male

DRUGS (4)
  1. INTERFERON ALFA [Suspect]
     Indication: HEPATITIS C
     Dosage: DF
  2. REBETOL [Suspect]
     Indication: HEPATITIS C
     Dosage: DF
  3. NORVASC [Concomitant]
  4. ZOLOFT /01011402/ [Concomitant]

REACTIONS (7)
  - ALANINE AMINOTRANSFERASE INCREASED [None]
  - ANAEMIA [None]
  - ASPARTATE AMINOTRANSFERASE INCREASED [None]
  - DRUG ERUPTION [None]
  - DRY MOUTH [None]
  - LICHENIFICATION [None]
  - LICHENOID KERATOSIS [None]
